FAERS Safety Report 9952987 (Version 2)
Quarter: 2014Q1

REPORT INFORMATION
  Report Type: Report from Study
  Country: US (occurrence: US)
  Receive Date: 20140304
  Receipt Date: 20140304
  Transmission Date: 20141002
  Serious: Yes (Other)
  Sender: FDA-Public Use
  Company Number: US-ABBVIE-13P-163-1074609-00

PATIENT
  Age: 52 Year
  Sex: Female
  Weight: 87.62 kg

DRUGS (2)
  1. HUMIRA [Suspect]
     Indication: RHEUMATOID ARTHRITIS
     Route: 058
     Dates: start: 20130215, end: 20130329
  2. METHOTREXATE [Concomitant]
     Indication: PRODUCT USED FOR UNKNOWN INDICATION

REACTIONS (3)
  - Chronic lymphocytic leukaemia [Not Recovered/Not Resolved]
  - Drug effect decreased [Unknown]
  - Urticaria [Unknown]
